FAERS Safety Report 25915547 (Version 3)
Quarter: 2025Q4

REPORT INFORMATION
  Report Type: Spontaneous
  Country: US (occurrence: None)
  Receive Date: 20251013
  Receipt Date: 20251124
  Transmission Date: 20260118
  Serious: Yes (Other)
  Sender: AMERICAN REGENT
  Company Number: US-AMERICAN REGENT INC-2025003727

PATIENT
  Age: 80 Year
  Sex: Female
  Weight: 70 kg

DRUGS (5)
  1. VENOFER [Suspect]
     Active Substance: IRON SUCROSE
     Indication: Blood iron decreased
     Dosage: 500 MILLIGRAM (68.75 ML/HR) IN 250 ML NS (NORMAL SALINE) BAG
     Dates: start: 20251002, end: 20251002
  2. LEVOTHYROXINE [Concomitant]
     Active Substance: LEVOTHYROXINE
     Indication: Hypothyroidism
     Dosage: 125 MICROGRAM
  3. OMEPRAZOLE [Concomitant]
     Active Substance: OMEPRAZOLE
     Indication: Gastrooesophageal reflux disease
     Dosage: 20 MILLIGRAM
  4. ROSUVASTATIN [Concomitant]
     Active Substance: ROSUVASTATIN
     Indication: Blood cholesterol abnormal
     Dosage: 20 MILLIGRAM
  5. CEFUROXIME [Concomitant]
     Active Substance: CEFUROXIME
     Indication: Urinary tract infection
     Dosage: 250 MILLIGRAM

REACTIONS (10)
  - Livedo reticularis [Recovered/Resolved]
  - Paraesthesia [Recovered/Resolved]
  - Malaise [Recovered/Resolved]
  - Hyperhidrosis [Recovered/Resolved]
  - Heart rate decreased [Recovered/Resolved]
  - Hypotension [Recovered/Resolved]
  - Oedema peripheral [Recovered/Resolved]
  - Dizziness [Recovered/Resolved]
  - Asthenia [Recovered/Resolved]
  - Product quality issue [Unknown]

NARRATIVE: CASE EVENT DATE: 20251002
